FAERS Safety Report 5321867-9 (Version None)
Quarter: 2007Q2

REPORT INFORMATION
  Report Type: 
  Country: None (occurrence: None)
  Receive Date: 20070510
  Receipt Date: 20070507
  Transmission Date: 20071010
  Serious: Yes (Death)
  Sender: FDA-Public Use
  Company Number: US-ROXANE LABORATORIES, INC-2007-BP-06151RO

PATIENT
  Sex: Male

DRUGS (1)
  1. METHADONE HCL ORAL SOLUTION USP, 10 MG/5 ML [Suspect]
     Indication: CANCER PAIN
     Dosage: 20 MG TID (SHOULD HAVE BEEN 10 MG TID)
     Route: 048
     Dates: start: 20070427, end: 20070429

REACTIONS (1)
  - DRUG DISPENSING ERROR [None]
